FAERS Safety Report 6885023-5 (Version None)
Quarter: 2010Q3

REPORT INFORMATION
  Report Type: 
  Country: None (occurrence: None)
  Receive Date: 20100729
  Receipt Date: 20071024
  Transmission Date: 20110219
  Serious: Yes (Hospitalization, Other)
  Sender: FDA-Public Use
  Company Number: US-PFIZER INC-2007089307

PATIENT
  Sex: Female
  Weight: 120.2 kg

DRUGS (5)
  1. CELEBREX [Suspect]
     Indication: PAIN
     Dates: start: 20040930
  2. VIOXX [Suspect]
     Indication: ARTHRITIS
     Dates: start: 20020101
  3. COZAAR [Concomitant]
     Indication: HYPERTENSION
     Dates: start: 20000101
  4. DIGOXIN [Concomitant]
     Indication: HEART RATE IRREGULAR
     Dates: start: 19950101
  5. NORPACE [Concomitant]
     Indication: HEART RATE IRREGULAR
     Dates: start: 19950101

REACTIONS (2)
  - DEEP VEIN THROMBOSIS [None]
  - PULMONARY EMBOLISM [None]
